FAERS Safety Report 23769169 (Version 1)
Quarter: 2024Q2

REPORT INFORMATION
  Report Type: Spontaneous
  Country: US (occurrence: None)
  Receive Date: 20240421
  Receipt Date: 20240421
  Transmission Date: 20240716
  Serious: No
  Sender: FDA-Public Use
  Company Number: None

PATIENT
  Age: 62 Year
  Sex: Male

DRUGS (1)
  1. SKYRIZI [Suspect]
     Active Substance: RISANKIZUMAB-RZAA
     Indication: Psoriasis
     Dosage: OTHER FREQUENCY : EVERY 3 MONTHS;?
     Route: 058

REACTIONS (5)
  - Sepsis [None]
  - Pneumonia [None]
  - Breast tenderness [None]
  - Mastoptosis [None]
  - Alopecia areata [None]

NARRATIVE: CASE EVENT DATE: 20240303
